FAERS Safety Report 21522364 (Version 3)
Quarter: 2022Q4

REPORT INFORMATION
  Report Type: Spontaneous
  Country: RU (occurrence: RU)
  Receive Date: 20221028
  Receipt Date: 20221205
  Transmission Date: 20230112
  Serious: Yes (Hospitalization)
  Sender: FDA-Public Use
  Company Number: RU-drreddys-LIT/RUS/22/0156287

PATIENT
  Age: 56 Year

DRUGS (6)
  1. OMEPRAZOLE [Suspect]
     Active Substance: OMEPRAZOLE
     Indication: Product used for unknown indication
  2. ASPIRIN [Suspect]
     Active Substance: ASPIRIN
     Indication: Chest pain
  3. ATORVASTATIN [Suspect]
     Active Substance: ATORVASTATIN
     Indication: Chest pain
  4. BISOPROLOL [Suspect]
     Active Substance: BISOPROLOL
     Indication: Chest pain
  5. LOSARTAN [Suspect]
     Active Substance: LOSARTAN
     Indication: Chest pain
  6. INDAPAMIDE [Suspect]
     Active Substance: INDAPAMIDE
     Indication: Chest pain

REACTIONS (4)
  - Chest pain [Recovered/Resolved]
  - Coronary artery disease [Recovered/Resolved]
  - Myocardial ischaemia [Unknown]
  - Ventricular tachycardia [Unknown]

NARRATIVE: CASE EVENT DATE: 20200825
